FAERS Safety Report 14806224 (Version 1)
Quarter: 2018Q2

REPORT INFORMATION
  Report Type: Spontaneous
  Country: US (occurrence: US)
  Receive Date: 20180425
  Receipt Date: 20180425
  Transmission Date: 20180711
  Serious: No
  Sender: FDA-Public Use
  Company Number: US-UPSHER-SMITH LABORATORIES, LLC-2017USL00272

PATIENT
  Sex: Male

DRUGS (1)
  1. QUDEXY XR [Suspect]
     Active Substance: TOPIRAMATE
     Indication: HEADACHE

REACTIONS (3)
  - Unevaluable event [Unknown]
  - Hypersomnia [Unknown]
  - Clumsiness [Unknown]
